FAERS Safety Report 8581161-X (Version None)
Quarter: 2012Q3

REPORT INFORMATION
  Report Type: 
  Country: None (occurrence: None)
  Receive Date: 20120809
  Receipt Date: 20120731
  Transmission Date: 20120928
  Serious: Yes (Other)
  Sender: FDA-Public Use
  Company Number: US-JNJFOC-20120702922

PATIENT
  Sex: Male

DRUGS (5)
  1. PREDNISONE TAB [Concomitant]
     Route: 065
  2. ASACOL [Concomitant]
     Route: 065
  3. CANASA [Concomitant]
     Route: 065
  4. CELEBREX [Suspect]
     Indication: ARTHRITIS
     Route: 065
  5. REMICADE [Suspect]
     Indication: PROCTITIS ULCERATIVE
     Route: 042

REACTIONS (4)
  - PROCTITIS ULCERATIVE [None]
  - ARTHRITIS [None]
  - DRUG EFFECT DECREASED [None]
  - GLAUCOMA [None]
